FAERS Safety Report 9990824 (Version 1)
Quarter: 2014Q1

REPORT INFORMATION
  Report Type: Report from Study
  Country: US (occurrence: US)
  Receive Date: 20140310
  Receipt Date: 20140310
  Transmission Date: 20141002
  Serious: No
  Sender: FDA-Public Use
  Company Number: US-ABBVIE-13P-163-1135298-00

PATIENT
  Age: 36 Year
  Sex: Male

DRUGS (5)
  1. HUMIRA [Suspect]
     Indication: CROHN^S DISEASE
     Dates: start: 20130802, end: 20130802
  2. HUMIRA [Suspect]
     Dates: start: 20130817
  3. FLECAINIDE [Concomitant]
     Indication: ATRIAL FIBRILLATION
  4. BUTAZONE [Concomitant]
     Indication: CROHN^S DISEASE
  5. BUSPAR [Concomitant]
     Indication: ANXIETY

REACTIONS (3)
  - Abdominal pain upper [Not Recovered/Not Resolved]
  - Abdominal pain upper [Not Recovered/Not Resolved]
  - Back pain [Not Recovered/Not Resolved]
